FAERS Safety Report 9948126 (Version 1)
Quarter: 2014Q1

REPORT INFORMATION
  Report Type: Spontaneous
  Country: US (occurrence: None)
  Receive Date: 20140122
  Receipt Date: 20140122
  Transmission Date: 20141002
  Serious: Yes (Other)
  Sender: FDA-Public Use
  Company Number: AP356-00304-SPO-US

PATIENT
  Age: 53 Year
  Sex: Male
  Weight: 124 kg

DRUGS (5)
  1. BELVIQ (LORCASERIN HYDROCHLORIDE) [Suspect]
     Indication: WEIGHT CONTROL
     Route: 048
     Dates: start: 20131201
  2. ANTIHYPERTENSIVE (ANTIHYPERTENSIVE) [Concomitant]
  3. CRESTOR (ROSUVASTATIN) [Concomitant]
  4. SYNTHORID (LEVOTHYROXINE SODIUM) [Concomitant]
  5. XANAX (ALPRAZOLAM) [Concomitant]

REACTIONS (2)
  - Insomnia [None]
  - Constipation [None]
